FAERS Safety Report 4476252-9 (Version None)
Quarter: 2004Q3

REPORT INFORMATION
  Report Type: 
  Country: None (occurrence: None)
  Receive Date: 20040923
  Receipt Date: 20040729
  Transmission Date: 20050211
  Serious: No
  Sender: FDA-Public Use
  Company Number: USA040773920

PATIENT
  Age: 49 Year
  Sex: Male
  Weight: 74 kg

DRUGS (2)
  1. FORTEO [Suspect]
     Indication: OSTEOPOROSIS
     Dates: start: 20040719
  2. CALCIUM [Concomitant]

REACTIONS (5)
  - ASTHENIA [None]
  - CONSTIPATION [None]
  - DYSURIA [None]
  - MUSCLE CRAMP [None]
  - POLLAKIURIA [None]
